FAERS Safety Report 4300364-3 (Version None)
Quarter: 2004Q1

REPORT INFORMATION
  Report Type: 
  Country: None (occurrence: None)
  Receive Date: 20040220
  Receipt Date: 20040218
  Transmission Date: 20041129
  Serious: Yes (Hospitalization)
  Sender: FDA-Public Use
  Company Number: US-GLAXOSMITHKLINE-A0498747A

PATIENT
  Age: 70 Year
  Sex: Female

DRUGS (6)
  1. COREG [Suspect]
     Dosage: 6.25MG TWICE PER DAY
     Route: 048
     Dates: start: 20030901
  2. FUROSEMIDE [Concomitant]
  3. ENALAPRIL [Concomitant]
  4. ACCOLATE [Concomitant]
  5. MEDROL [Concomitant]
  6. LEVAQUIN [Concomitant]

REACTIONS (7)
  - ATRIAL FIBRILLATION [None]
  - BLOOD PRESSURE DECREASED [None]
  - HEART RATE DECREASED [None]
  - HYPERSENSITIVITY [None]
  - LETHARGY [None]
  - RESPIRATORY TRACT INFECTION [None]
  - THROAT TIGHTNESS [None]
